FAERS Safety Report 19624532 (Version 5)
Quarter: 2022Q3

REPORT INFORMATION
  Report Type: Report from Study
  Country: JP (occurrence: JP)
  Receive Date: 20210728
  Receipt Date: 20220906
  Transmission Date: 20221026
  Serious: Yes (Hospitalization, Other)
  Sender: FDA-Public Use
  Company Number: JP-ONO-2021JP017896

PATIENT
  Age: 60 Year
  Sex: Female
  Weight: 41 kg

DRUGS (16)
  1. ETELCALCETIDE [Suspect]
     Active Substance: ETELCALCETIDE
     Indication: Hyperparathyroidism secondary
     Dosage: 2.5 MILLIGRAM
     Route: 010
     Dates: start: 20210526
  2. EPOETIN ALFA [Concomitant]
     Active Substance: ERYTHROPOIETIN
     Dosage: 4500 INTERNATIONAL UNIT, QWK
     Route: 065
  3. EPOETIN ALFA [Concomitant]
     Active Substance: ERYTHROPOIETIN
     Dosage: UNK
  4. ROCALTROL [Concomitant]
     Active Substance: CALCITRIOL
     Dosage: 1 MICROGRAM
     Route: 065
     Dates: start: 20191111, end: 20191111
  5. ROCALTROL [Concomitant]
     Active Substance: CALCITRIOL
     Dosage: 0.5 MICROGRAM
     Route: 065
     Dates: end: 20191115
  6. ROCALTROL [Concomitant]
     Active Substance: CALCITRIOL
     Dosage: 1 MICROGRAM, Q84H
     Route: 065
     Dates: start: 20191118, end: 20201223
  7. ROCALTROL [Concomitant]
     Active Substance: CALCITRIOL
     Dosage: 0.5 MICROGRAM, QWK
     Route: 065
     Dates: start: 20191122, end: 20201225
  8. ROCALTROL [Concomitant]
     Active Substance: CALCITRIOL
     Dosage: 1 MICROGRAM, QWK
     Route: 065
     Dates: start: 20201228, end: 20210301
  9. ROCALTROL [Concomitant]
     Active Substance: CALCITRIOL
     Dosage: 0.5 MICROGRAM, Q84H
     Route: 065
     Dates: start: 20201230, end: 20210303
  10. ROCALTROL [Concomitant]
     Active Substance: CALCITRIOL
     Dosage: 0.5 MICROGRAM, QWK
     Route: 065
     Dates: start: 20210305
  11. ROCALTROL [Concomitant]
     Active Substance: CALCITRIOL
     Dosage: 1 UG, Q84H
     Route: 065
     Dates: start: 20210308
  12. ROCALTROL [Concomitant]
     Active Substance: CALCITRIOL
     Dosage: 0.5 UG
     Dates: end: 20191115
  13. ROCALTROL [Concomitant]
     Active Substance: CALCITRIOL
     Dosage: 0.5 UG, QW
     Dates: start: 20191122, end: 20201225
  14. ROCALTROL [Concomitant]
     Active Substance: CALCITRIOL
     Dosage: 0.5 UG, Q84H
     Dates: start: 20201230, end: 20210303
  15. ROCALTROL [Concomitant]
     Active Substance: CALCITRIOL
     Dosage: 0.5 UG, QW
     Dates: start: 20210305
  16. P-tol [Concomitant]
     Dosage: 1500 MILLIGRAM, QD
     Route: 048

REACTIONS (1)
  - Subarachnoid haemorrhage [Not Recovered/Not Resolved]

NARRATIVE: CASE EVENT DATE: 20210602
